FAERS Safety Report 9220351 (Version 7)
Quarter: 2013Q4

REPORT INFORMATION
  Report Type: Report from Study
  Country: DE (occurrence: DE)
  Receive Date: 20130409
  Receipt Date: 20131029
  Transmission Date: 20140711
  Serious: Yes (Death, Hospitalization)
  Sender: FDA-Public Use
  Company Number: DE-PFIZER INC-2013105221

PATIENT
  Age: 74 Year
  Sex: Female
  Weight: 67 kg

DRUGS (3)
  1. AROMASIN [Suspect]
     Indication: BREAST CANCER FEMALE
     Dosage: 25 MG, DAILY
     Route: 048
     Dates: start: 20111222, end: 20130307
  2. DOCETAXEL [Suspect]
     Indication: BREAST CANCER FEMALE
     Dosage: 144.75 MG, DAILY
     Route: 042
     Dates: start: 20110818, end: 20121201
  3. ENDOXAN [Suspect]
     Indication: BREAST CANCER FEMALE
     Dosage: 1158 MG, DAILY
     Route: 042
     Dates: start: 20110818, end: 20121201

REACTIONS (4)
  - Second primary malignancy [Fatal]
  - Adenocarcinoma [Fatal]
  - Pleural effusion [Not Recovered/Not Resolved]
  - Pneumonitis [Not Recovered/Not Resolved]
